FAERS Safety Report 6746847-8 (Version None)
Quarter: 2010Q2

REPORT INFORMATION
  Report Type: 
  Country: None (occurrence: None)
  Receive Date: 20100528
  Receipt Date: 20100331
  Transmission Date: 20101027
  Serious: No
  Sender: FDA-Public Use
  Company Number: A0852907A

PATIENT
  Age: 53 Year
  Sex: Male

DRUGS (16)
  1. VENTOLIN [Suspect]
     Indication: ASTHMA
     Dosage: 2PUFF AS REQUIRED
     Route: 055
     Dates: start: 20060101
  2. COMBIVENT [Concomitant]
  3. ADVAIR DISKUS 100/50 [Concomitant]
  4. ASPIRIN [Concomitant]
  5. ZINC [Concomitant]
  6. MULTI-VITAMIN [Concomitant]
  7. METFORMIN HYDROCHLORIDE [Concomitant]
  8. METOPROLOL [Concomitant]
  9. ENALAPRIL [Concomitant]
  10. NEXIUM [Concomitant]
  11. AMLODIPINE [Concomitant]
  12. TRAZODONE HCL [Concomitant]
  13. LIPITOR [Concomitant]
  14. GLIMEPIRIDE [Concomitant]
  15. COZAAR [Concomitant]
  16. HYDROCODONE [Concomitant]

REACTIONS (8)
  - ASTHENIA [None]
  - CHEST DISCOMFORT [None]
  - DYSPNOEA [None]
  - LOWER RESPIRATORY TRACT INFECTION [None]
  - OROPHARYNGEAL PAIN [None]
  - PANIC REACTION [None]
  - PRODUCT QUALITY ISSUE [None]
  - PRODUCTIVE COUGH [None]
